FAERS Safety Report 11947094 (Version 1)
Quarter: 2016Q1

REPORT INFORMATION
  Report Type: Report from Study
  Country: US (occurrence: US)
  Receive Date: 20160125
  Receipt Date: 20160125
  Transmission Date: 20160526
  Serious: Yes (Other)
  Sender: FDA-Public Use
  Company Number: US-AMGEN-USASL2016007334

PATIENT
  Age: 39 Year
  Sex: Female

DRUGS (1)
  1. ENBREL [Suspect]
     Active Substance: ETANERCEPT
     Indication: RHEUMATOID ARTHRITIS
     Dosage: 50 MG, QWK
     Route: 065
     Dates: start: 20150820

REACTIONS (11)
  - Injection site induration [Unknown]
  - Contusion [Unknown]
  - Systemic lupus erythematosus [Unknown]
  - Nausea [Unknown]
  - Scleroderma [Unknown]
  - Influenza [Unknown]
  - Increased tendency to bruise [Unknown]
  - Bronchitis [Unknown]
  - Inflammation [Unknown]
  - Injection site pain [Unknown]
  - Injection site warmth [Unknown]
